FAERS Safety Report 24002567 (Version 5)
Quarter: 2024Q4

REPORT INFORMATION
  Report Type: Spontaneous
  Country: US (occurrence: US)
  Receive Date: 20240623
  Receipt Date: 20241204
  Transmission Date: 20250115
  Serious: Yes (Hospitalization)
  Sender: BIOGEN
  Company Number: US-BIOGEN-2024BI01270146

PATIENT
  Age: 57 Year
  Sex: Female

DRUGS (3)
  1. VUMERITY [Suspect]
     Active Substance: DIROXIMEL FUMARATE
     Indication: Multiple sclerosis
     Dosage: STARTING DOSE
     Route: 050
     Dates: start: 20231226, end: 20240101
  2. VUMERITY [Suspect]
     Active Substance: DIROXIMEL FUMARATE
     Dosage: MAINTENANCE DOSE
     Route: 050
     Dates: start: 20240102
  3. BACLOFEN [Concomitant]
     Active Substance: BACLOFEN
     Indication: Product used for unknown indication
     Route: 050

REACTIONS (1)
  - Multiple sclerosis relapse [Recovered/Resolved]

NARRATIVE: CASE EVENT DATE: 20240526
